FAERS Safety Report 12895715 (Version 1)
Quarter: 2016Q4

REPORT INFORMATION
  Report Type: Spontaneous
  Country: PE (occurrence: PE)
  Receive Date: 20161031
  Receipt Date: 20161031
  Transmission Date: 20170207
  Serious: Yes (Hospitalization, Other)
  Sender: FDA-Public Use
  Company Number: PE-AMGEN-PERSP2016151335

PATIENT
  Age: 86 Year
  Sex: Female

DRUGS (6)
  1. PROLIA [Suspect]
     Active Substance: DENOSUMAB
     Dosage: UNK
     Route: 058
     Dates: start: 20140522
  2. PROLIA [Suspect]
     Active Substance: DENOSUMAB
     Dosage: UNK
     Route: 058
     Dates: start: 20141120
  3. PROLIA [Suspect]
     Active Substance: DENOSUMAB
     Dosage: UNK
     Route: 058
     Dates: start: 20151118
  4. PROLIA [Suspect]
     Active Substance: DENOSUMAB
     Dosage: UNK
     Route: 058
     Dates: start: 20160519
  5. PROLIA [Suspect]
     Active Substance: DENOSUMAB
     Dosage: UNK
     Route: 058
     Dates: start: 20150519
  6. PROLIA [Suspect]
     Active Substance: DENOSUMAB
     Indication: OSTEOPOROSIS
     Dosage: 60 MG/ML, CYCLICAL
     Route: 058
     Dates: start: 20131125

REACTIONS (3)
  - Fall [Unknown]
  - Hip fracture [Recovered/Resolved]
  - Thrombosis [Recovering/Resolving]

NARRATIVE: CASE EVENT DATE: 20160815
